FAERS Safety Report 4507056-6 (Version None)
Quarter: 2004Q4

REPORT INFORMATION
  Report Type: 
  Country: None (occurrence: None)
  Receive Date: 20041122
  Receipt Date: 20040901
  Transmission Date: 20050328
  Serious: Yes (Other)
  Sender: FDA-Public Use
  Company Number: GB-MERCK-0409GBR00042

PATIENT
  Age: 49 Year
  Sex: Male
  Weight: 75 kg

DRUGS (3)
  1. ZOCOR [Suspect]
     Indication: BLOOD CHOLESTEROL INCREASED
     Route: 048
     Dates: start: 20040622, end: 20040708
  2. ZOCOR [Suspect]
     Indication: DIABETES MELLITUS NON-INSULIN-DEPENDENT
     Route: 048
     Dates: start: 20040622, end: 20040708
  3. METFORMIN [Concomitant]
     Route: 065
     Dates: start: 20040705

REACTIONS (3)
  - ANAPHYLACTIC REACTION [None]
  - RASH PRURITIC [None]
  - SWELLING FACE [None]
